FAERS Safety Report 23640623 (Version 1)
Quarter: 2024Q1

REPORT INFORMATION
  Report Type: Spontaneous
  Country: CN (occurrence: CN)
  Receive Date: 20240318
  Receipt Date: 20240318
  Transmission Date: 20240410
  Serious: Yes (Hospitalization, Other)
  Sender: FDA-Public Use
  Company Number: None

PATIENT
  Age: 49 Year
  Sex: Female
  Weight: 52 kg

DRUGS (4)
  1. CYCLOPHOSPHAMIDE [Suspect]
     Active Substance: CYCLOPHOSPHAMIDE
     Indication: Breast cancer female
     Dosage: 800 MG, ONE TIME IN ONE DAY, THIRD CYCLE OF CHEMOTHERAPY
     Route: 041
     Dates: start: 20240130, end: 20240130
  2. CYCLOPHOSPHAMIDE [Suspect]
     Active Substance: CYCLOPHOSPHAMIDE
     Indication: Breast cancer female
     Dosage: 850 MG, AS A PART OF FIRST CYCLE OF ADJUVANT TC REGIMEN
     Route: 065
     Dates: start: 20231214
  3. PACLITAXEL [Suspect]
     Active Substance: PACLITAXEL
     Indication: Drug therapy
     Dosage: 0.38 G, AS A PART OF FIRST CYCLE OF ADJUVANT TC REGIMEN
     Route: 065
     Dates: start: 20231214
  4. PACLITAXEL [Suspect]
     Active Substance: PACLITAXEL
     Indication: Breast cancer female
     Dosage: 0.38 G, ONE TIME IN ONE DAY, THIRD CYCLE OF CHEMOTHERAPY
     Route: 041
     Dates: start: 20240130, end: 20240130

REACTIONS (5)
  - Abdominal distension [Unknown]
  - Liver injury [Unknown]
  - Hepatic function abnormal [Recovering/Resolving]
  - Aspartate aminotransferase increased [Recovered/Resolved]
  - Alanine aminotransferase increased [Recovered/Resolved]

NARRATIVE: CASE EVENT DATE: 20231214
